FAERS Safety Report 9709225 (Version 1)
Quarter: 2013Q4

REPORT INFORMATION
  Report Type: Report from Study
  Country: US (occurrence: US)
  Receive Date: 20131125
  Receipt Date: 20131125
  Transmission Date: 20140711
  Serious: Yes (Other)
  Sender: FDA-Public Use
  Company Number: US-ABBVIE-13P-163-1170533-00

PATIENT
  Age: 49 Year
  Sex: Male

DRUGS (5)
  1. HUMIRA [Suspect]
     Indication: PSORIASIS
     Dosage: DAY 1
     Dates: start: 201309, end: 201309
  2. HUMIRA [Suspect]
     Dosage: DAY 8
     Dates: start: 2013, end: 2013
  3. HUMIRA [Suspect]
     Dates: start: 2013
  4. MULTIVITAMIN [Concomitant]
     Indication: PRODUCT USED FOR UNKNOWN INDICATION
     Dosage: DAILY
  5. LEVEMIR FLEX-PEN [Concomitant]
     Indication: BLOOD GLUCOSE
     Dosage: BASED ON SLIDING SCALE IN AM, NOON AND SUPPERTIME

REACTIONS (6)
  - Vasodilatation [Not Recovered/Not Resolved]
  - Venous insufficiency [Not Recovered/Not Resolved]
  - Contusion [Unknown]
  - Hypoaesthesia [Unknown]
  - Paraesthesia [Unknown]
  - Nerve injury [Unknown]
